FAERS Safety Report 9367251 (Version 2)
Quarter: 2013Q3

REPORT INFORMATION
  Report Type: Spontaneous
  Country: US (occurrence: US)
  Receive Date: 20130625
  Receipt Date: 20130722
  Transmission Date: 20140515
  Serious: Yes (Other)
  Sender: FDA-Public Use
  Company Number: US-BAYER-2013-078131

PATIENT
  Sex: 0

DRUGS (1)
  1. MAGNEVIST [Suspect]

REACTIONS (4)
  - Tremor [None]
  - Urticaria [None]
  - Dyspnoea [None]
  - Pruritus [None]
